FAERS Safety Report 24015320 (Version 1)
Quarter: 2024Q2

REPORT INFORMATION
  Report Type: Spontaneous
  Country: CN (occurrence: CN)
  Receive Date: 20240626
  Receipt Date: 20240626
  Transmission Date: 20240716
  Serious: Yes (Hospitalization)
  Sender: FDA-Public Use
  Company Number: CN-BoehringerIngelheim-2024-BI-035947

PATIENT
  Age: 64 Year
  Sex: Male
  Weight: 60.0 kg

DRUGS (3)
  1. JARDIANCE [Suspect]
     Active Substance: EMPAGLIFLOZIN
     Indication: Type 2 diabetes mellitus
     Route: 048
     Dates: start: 20240601, end: 20240607
  2. GLIMEPIRIDE [Concomitant]
     Active Substance: GLIMEPIRIDE
     Indication: Type 2 diabetes mellitus
     Route: 048
     Dates: start: 20240601, end: 20240607
  3. Metformin Hydrochloride Sustained-release Tablets [Concomitant]
     Indication: Type 2 diabetes mellitus
     Dosage: SUSTAINED RELEASE
     Route: 048
     Dates: start: 20240601, end: 20240607

REACTIONS (2)
  - Eczema [Recovering/Resolving]
  - Neurodermatitis [Recovering/Resolving]

NARRATIVE: CASE EVENT DATE: 20240607
